FAERS Safety Report 20079974 (Version 1)
Quarter: 2021Q4

REPORT INFORMATION
  Report Type: Spontaneous
  Country: LK (occurrence: LK)
  Receive Date: 20211117
  Receipt Date: 20211117
  Transmission Date: 20220303
  Serious: Yes (Hospitalization, Other)
  Sender: FDA-Public Use
  Company Number: LK-Accord-245224

PATIENT
  Age: 14 Year
  Sex: Male

DRUGS (2)
  1. SERTRALINE [Suspect]
     Active Substance: SERTRALINE HYDROCHLORIDE
     Indication: Depression
  2. FLUNARIZINE [Concomitant]
     Active Substance: FLUNARIZINE
     Indication: Depression

REACTIONS (2)
  - Subarachnoid haemorrhage [Recovered/Resolved]
  - Condition aggravated [Recovered/Resolved]
